FAERS Safety Report 10779266 (Version 1)
Quarter: 2015Q1

REPORT INFORMATION
  Report Type: Spontaneous
  Country: US (occurrence: None)
  Receive Date: 20150206
  Receipt Date: 20150206
  Transmission Date: 20150721
  Serious: No
  Sender: FDA-Public Use
  Company Number: None

PATIENT
  Age: 47 Year
  Sex: Male
  Weight: 112.49 kg

DRUGS (1)
  1. SILDENAFIL 20MG [Suspect]
     Active Substance: SILDENAFIL
     Dosage: 3 MONTHS QD

REACTIONS (1)
  - Erectile dysfunction [None]

NARRATIVE: CASE EVENT DATE: 20150108
